FAERS Safety Report 17442801 (Version 3)
Quarter: 2020Q2

REPORT INFORMATION
  Report Type: Spontaneous
  Country: US (occurrence: US)
  Receive Date: 20200220
  Receipt Date: 20200519
  Transmission Date: 20200713
  Serious: Yes (Other)
  Sender: FDA-Public Use
  Company Number: US-AMGEN-USASP2020027812

PATIENT
  Sex: Male

DRUGS (12)
  1. CYCLOBENZAPRINE. [Concomitant]
     Active Substance: CYCLOBENZAPRINE
     Dosage: 10 MILLIGRAM
  2. LEVOTHROID [Concomitant]
     Active Substance: LEVOTHYROXINE SODIUM
     Dosage: 200 MICROGRAM
  3. SIMVASTATIN. [Concomitant]
     Active Substance: SIMVASTATIN
     Dosage: 40 MILLIGRAM
  4. GLIMEPIRIDE. [Concomitant]
     Active Substance: GLIMEPIRIDE
     Dosage: 4 MILLIGRAM
  5. LYRICA [Concomitant]
     Active Substance: PREGABALIN
     Dosage: 50 MILLIGRAM
  6. TRULICITY [Concomitant]
     Active Substance: DULAGLUTIDE
     Dosage: 1.5/0.5
  7. METHOTREXATE. [Concomitant]
     Active Substance: METHOTREXATE
     Dosage: 50 MILLIGRAM/2 MILLILITER
  8. ENBREL [Suspect]
     Active Substance: ETANERCEPT
     Dosage: 50 MILLIGRAM, QWK
     Route: 058
     Dates: start: 20200312
  9. TIMOLOL MALEATE. [Concomitant]
     Active Substance: TIMOLOL MALEATE
     Dosage: 0.5 PERCENT OP
  10. ENBREL [Suspect]
     Active Substance: ETANERCEPT
     Indication: RHEUMATOID ARTHRITIS
     Dosage: 50 MILLIGRAM, QWK
     Route: 058
     Dates: start: 20160819
  11. OXYCODONE [Concomitant]
     Active Substance: OXYCODONE
     Dosage: 15 MILLIGRAM
  12. PREDNISONE. [Concomitant]
     Active Substance: PREDNISONE
     Dosage: 5 MILLIGRAM

REACTIONS (3)
  - Localised infection [Not Recovered/Not Resolved]
  - Staphylococcal infection [Unknown]
  - Surgery [Not Recovered/Not Resolved]
